FAERS Safety Report 24814872 (Version 1)
Quarter: 2025Q1

REPORT INFORMATION
  Report Type: Spontaneous
  Country: IT (occurrence: IT)
  Receive Date: 20250107
  Receipt Date: 20250107
  Transmission Date: 20250409
  Serious: Yes (Hospitalization, Other)
  Sender: AMICI PHARMACEUTICALS
  Company Number: IT-AMICI-2025AMILIT00001

PATIENT
  Age: 82 Year
  Sex: Male

DRUGS (4)
  1. DIGOXIN [Suspect]
     Active Substance: DIGOXIN
     Indication: Product used for unknown indication
  2. APIXABAN [Suspect]
     Active Substance: APIXABAN
     Indication: Product used for unknown indication
  3. METFORMIN [Concomitant]
     Active Substance: METFORMIN HYDROCHLORIDE
     Indication: Product used for unknown indication
  4. TELMISARTAN [Concomitant]
     Active Substance: TELMISARTAN
     Indication: Product used for unknown indication

REACTIONS (4)
  - Toxicity to various agents [Recovered/Resolved]
  - Nodal rhythm [Recovered/Resolved]
  - Electrocardiogram ST segment depression [Unknown]
  - Atrial fibrillation [Not Recovered/Not Resolved]
